FAERS Safety Report 10248296 (Version 1)
Quarter: 2014Q2

REPORT INFORMATION
  Report Type: Spontaneous
  Country: US (occurrence: US)
  Receive Date: 20140620
  Receipt Date: 20140620
  Transmission Date: 20141212
  Serious: No
  Sender: FDA-Public Use
  Company Number: US-009507513-1406USA007048

PATIENT
  Age: 28 Year
  Sex: Female
  Weight: 65.31 kg

DRUGS (1)
  1. NEXPLANON [Suspect]
     Indication: CONTRACEPTION
     Dosage: 68 MG, ONE ROD EVERY THREE YEARS
     Route: 059
     Dates: start: 20140408

REACTIONS (2)
  - Pruritus [Not Recovered/Not Resolved]
  - Device breakage [Not Recovered/Not Resolved]
